FAERS Safety Report 23462185 (Version 2)
Quarter: 2024Q1

REPORT INFORMATION
  Report Type: Report from Study
  Country: US (occurrence: US)
  Receive Date: 20240131
  Receipt Date: 20240209
  Transmission Date: 20240410
  Serious: Yes (Hospitalization)
  Sender: FDA-Public Use
  Company Number: US-BRISTOL-MYERS SQUIBB COMPANY-2024-015456

PATIENT
  Age: 69 Year
  Sex: Male
  Weight: 72.12 kg

DRUGS (3)
  1. POMALYST [Suspect]
     Active Substance: POMALIDOMIDE
     Indication: Plasma cell myeloma
     Dosage: FREQUENCY WAS 21
     Dates: start: 20231026
  2. POMALYST [Suspect]
     Active Substance: POMALIDOMIDE
     Indication: Plasma cell myeloma refractory
     Dosage: DAILY ON DAYS 1 THROUGH 21 AND THEN DONOT TAKE FOR 7 DAYS
     Route: 048
     Dates: start: 202310, end: 202312
  3. POMALYST [Suspect]
     Active Substance: POMALIDOMIDE
     Dates: start: 202310

REACTIONS (3)
  - White blood cell count abnormal [Unknown]
  - Bone pain [Recovering/Resolving]
  - Illness [Unknown]

NARRATIVE: CASE EVENT DATE: 20231001
